FAERS Safety Report 10477121 (Version 2)
Quarter: 2014Q4

REPORT INFORMATION
  Report Type: Report from Study
  Country: US (occurrence: US)
  Receive Date: 20140926
  Receipt Date: 20141027
  Transmission Date: 20150528
  Serious: Yes (Hospitalization)
  Sender: FDA-Public Use
  Company Number: US-BIOGENIDEC-2014BI097624

PATIENT
  Sex: Female

DRUGS (1)
  1. TECFIDERA [Suspect]
     Active Substance: DIMETHYL FUMARATE
     Indication: MULTIPLE SCLEROSIS

REACTIONS (6)
  - Gastric disorder [Recovered/Resolved]
  - Vomiting [Unknown]
  - Weight decreased [Unknown]
  - Memory impairment [Unknown]
  - Abdominal pain upper [Unknown]
  - Chest pain [Unknown]
